FAERS Safety Report 14893095 (Version 2)
Quarter: 2018Q2

REPORT INFORMATION
  Report Type: Spontaneous
  Country: DE (occurrence: DE)
  Receive Date: 20180514
  Receipt Date: 20180621
  Transmission Date: 20180711
  Serious: Yes (Other)
  Sender: FDA-Public Use
  Company Number: DE-TEVA-2018-DE-892418

PATIENT
  Age: 72 Year
  Sex: Female
  Weight: 63 kg

DRUGS (10)
  1. NAC 600 [Concomitant]
  2. TARGIN 20MG/10MG [Concomitant]
     Active Substance: NALOXONE HYDROCHLORIDE\OXYCODONE HYDROCHLORIDE
  3. NEBIVOLOL. [Concomitant]
     Active Substance: NEBIVOLOL
  4. ELIQUIS [Suspect]
     Active Substance: APIXABAN
     Dosage: 10 MILLIGRAM DAILY; 1-0-1-0
     Route: 048
  5. L-THYROXIN [Concomitant]
     Active Substance: LEVOTHYROXINE SODIUM
  6. MIRTAZAPIN [Concomitant]
     Active Substance: MIRTAZAPINE
  7. PARACETAMOL [Concomitant]
     Active Substance: ACETAMINOPHEN
  8. PANTOZOL [Concomitant]
     Active Substance: PANTOPRAZOLE SODIUM
  9. VIANI FORTE [Concomitant]
     Active Substance: FLUTICASONE PROPIONATE\SALMETEROL XINAFOATE
  10. PREDNISOLONE. [Suspect]
     Active Substance: PREDNISOLONE
     Dosage: 7.5 MILLIGRAM DAILY; 1-0-0-0
     Route: 048

REACTIONS (1)
  - Haematemesis [Unknown]

NARRATIVE: CASE EVENT DATE: 20170506
